FAERS Safety Report 9275642 (Version 1)
Quarter: 2013Q1

REPORT INFORMATION
  Report Type: Spontaneous
  Country: CA (occurrence: None)
  Receive Date: 20121109
  Receipt Date: 20121109
  Transmission Date: 20140127
  Serious: Yes (Other)
  Sender: FDA-Public Use
  Company Number: 2012S1000127

PATIENT
  Age: 48 Year
  Sex: Male

DRUGS (1)
  1. CUBICIN (DAPTOMYCIN) [Suspect]
     Indication: ENDOCARDITIS
     Route: 042
     Dates: start: 20120120

REACTIONS (2)
  - Hallucination, auditory [None]
  - Nightmare [None]
